FAERS Safety Report 10104567 (Version 2)
Quarter: 2014Q2

REPORT INFORMATION
  Report Type: Report from Study
  Country: US (occurrence: US)
  Receive Date: 20140424
  Receipt Date: 20140424
  Transmission Date: 20141212
  Serious: Yes (Hospitalization, Other)
  Sender: FDA-Public Use
  Company Number: US-ABBVIE-14P-163-1225948-00

PATIENT
  Age: 55 Year
  Sex: Female
  Weight: 56.75 kg

DRUGS (13)
  1. HUMIRA [Suspect]
     Indication: RHEUMATOID ARTHRITIS
     Route: 058
  2. HUMIRA [Suspect]
     Route: 058
  3. PLAVIX [Concomitant]
     Indication: PRODUCT USED FOR UNKNOWN INDICATION
     Route: 048
     Dates: start: 201311
  4. ASPIRIN [Concomitant]
     Indication: PRODUCT USED FOR UNKNOWN INDICATION
     Route: 048
     Dates: start: 201311
  5. ATORVASTATIN [Concomitant]
     Indication: BLOOD CHOLESTEROL INCREASED
     Route: 048
     Dates: start: 201311
  6. ATORVASTATIN [Concomitant]
     Route: 048
     Dates: start: 201311
  7. LISINOPRIL [Concomitant]
     Indication: HYPERTENSION
     Dosage: AT HOUR OF SLEEP
     Route: 048
  8. COREG [Concomitant]
     Indication: PRODUCT USED FOR UNKNOWN INDICATION
     Route: 048
  9. HYDROCHLOROTHIAZIDE [Concomitant]
     Indication: PRODUCT USED FOR UNKNOWN INDICATION
     Route: 048
  10. LORAZEPAM [Concomitant]
     Indication: SLEEP DISORDER
  11. LORAZEPAM [Concomitant]
     Indication: PANIC ATTACK
  12. NEURONTIN [Concomitant]
     Indication: RHEUMATOID ARTHRITIS
     Route: 048
     Dates: start: 2014
  13. CITALOPRAM [Concomitant]
     Indication: DEPRESSION
     Route: 048

REACTIONS (10)
  - Aneurysm [Recovered/Resolved]
  - Transient ischaemic attack [Recovered/Resolved]
  - Vision blurred [Recovered/Resolved]
  - Cerebrovascular accident [Recovered/Resolved]
  - Drug dose omission [Not Recovered/Not Resolved]
  - Device issue [Not Recovered/Not Resolved]
  - Arthralgia [Recovering/Resolving]
  - Migraine [Recovered/Resolved]
  - Dizziness [Recovered/Resolved]
  - Memory impairment [Not Recovered/Not Resolved]
